FAERS Safety Report 11003924 (Version 1)
Quarter: 2015Q2

REPORT INFORMATION
  Report Type: Spontaneous
  Country: US (occurrence: None)
  Receive Date: 20150407
  Receipt Date: 20150407
  Transmission Date: 20150821
  Serious: Yes (Other)
  Sender: FDA-Public Use
  Company Number: 2015AKN00184

PATIENT
  Age: 16 Year
  Sex: Male
  Weight: 74.1 kg

DRUGS (1)
  1. MYORISAN [Suspect]
     Active Substance: ISOTRETINOIN
     Indication: ACNE
     Dates: start: 20141120, end: 20150325

REACTIONS (2)
  - Intentional self-injury [None]
  - Depression [None]

NARRATIVE: CASE EVENT DATE: 20150325
